FAERS Safety Report 9496866 (Version 1)
Quarter: 2013Q3

REPORT INFORMATION
  Report Type: Spontaneous
  Country: TR (occurrence: None)
  Receive Date: 20130830
  Receipt Date: 20130830
  Transmission Date: 20140515
  Serious: No
  Sender: FDA-Public Use
  Company Number: 2013243998

PATIENT
  Age: 22 Year
  Sex: Female

DRUGS (3)
  1. LANSOPRAZOLE [Suspect]
     Indication: ALLERGY TEST
     Route: 048
  2. LANSOPRAZOLE [Suspect]
     Indication: ALLERGY TEST
     Route: 048
  3. LANSOPRAZOLE [Suspect]
     Route: 048

REACTIONS (3)
  - Urticaria [None]
  - Angioedema [None]
  - Drug hypersensitivity [None]
